FAERS Safety Report 4313350-4 (Version None)
Quarter: 2004Q1

REPORT INFORMATION
  Report Type: 
  Country: None (occurrence: None)
  Receive Date: 20040304
  Receipt Date: 20040225
  Transmission Date: 20041129
  Serious: Yes (Life-Threatening, Hospitalization, Other)
  Sender: FDA-Public Use
  Company Number: USA-2004-0013460

PATIENT
  Age: 47 Year
  Sex: Female

DRUGS (1)
  1. MORPHINE SULFATE [Suspect]
     Indication: PAIN
     Dosage: 510 MG, SINGLE, INTRATHECAL
     Route: 037

REACTIONS (19)
  - ACCIDENTAL OVERDOSE [None]
  - BLOOD PRESSURE INCREASED [None]
  - BRAIN OEDEMA [None]
  - DIPLOPIA [None]
  - DISORIENTATION [None]
  - DRUG TOXICITY [None]
  - FLUSHING [None]
  - GRAND MAL CONVULSION [None]
  - HEADACHE [None]
  - HYPERTENSION [None]
  - HYPERVENTILATION [None]
  - HYPOTENSION [None]
  - IATROGENIC INJURY [None]
  - MALAISE [None]
  - MEDICATION ERROR [None]
  - MEMORY IMPAIRMENT [None]
  - MIOSIS [None]
  - SOMNOLENCE [None]
  - STATUS EPILEPTICUS [None]
